FAERS Safety Report 19144882 (Version 5)
Quarter: 2021Q2

REPORT INFORMATION
  Report Type: Spontaneous
  Country: US (occurrence: US)
  Receive Date: 20210416
  Receipt Date: 20210625
  Transmission Date: 20210717
  Serious: Yes (Other)
  Sender: FDA-Public Use
  Company Number: US-BRISTOL-MYERS SQUIBB COMPANY-BMS-2021-036701

PATIENT
  Age: 81 Year
  Sex: Female

DRUGS (2)
  1. ELIQUIS [Suspect]
     Active Substance: APIXABAN
     Indication: DEEP VEIN THROMBOSIS
     Dosage: 5 MILLIGRAM, BID
     Route: 048
     Dates: start: 20210406, end: 202106
  2. PFIZER?BIONTECH COVID?19 VACCINE [Suspect]
     Active Substance: TOZINAMERAN
     Indication: PRODUCT USED FOR UNKNOWN INDICATION
     Dosage: UNK
     Route: 065
     Dates: start: 20210309

REACTIONS (9)
  - Condition aggravated [Not Recovered/Not Resolved]
  - Paraesthesia [Unknown]
  - Palpitations [Recovered/Resolved]
  - Arthralgia [Unknown]
  - Constipation [Unknown]
  - Thrombosis [Not Recovered/Not Resolved]
  - Prescribed underdose [Unknown]
  - Fatigue [Unknown]
  - Skin discolouration [Unknown]

NARRATIVE: CASE EVENT DATE: 202104
